FAERS Safety Report 7235789-X (Version None)
Quarter: 2011Q1

REPORT INFORMATION
  Report Type: 
  Country: None (occurrence: None)
  Receive Date: 20110120
  Receipt Date: 20110113
  Transmission Date: 20110831
  Serious: Yes (Hospitalization)
  Sender: FDA-Public Use
  Company Number: GB-MPIJNJ-2010-01739

PATIENT

DRUGS (14)
  1. DOXORUBICIN [Suspect]
     Indication: MANTLE CELL LYMPHOMA
     Dosage: 92 MG, UNK
     Route: 042
     Dates: start: 20090911
  2. VINCRISTINE [Suspect]
     Indication: MANTLE CELL LYMPHOMA
     Dosage: 2 MG, UNK
     Route: 042
     Dates: start: 20090911
  3. CYCLOPHOSPHAMIDE [Suspect]
     Indication: MANTLE CELL LYMPHOMA
     Dosage: 1380 MG, UNK
     Route: 042
     Dates: start: 20090911
  4. LANSOPRAZOLE [Concomitant]
     Indication: PROPHYLAXIS
     Dosage: 30 MG, UNK
     Route: 048
     Dates: start: 20090911
  5. CYCLIZINE [Concomitant]
     Indication: PROPHYLAXIS
     Dosage: 50 MG, UNK
     Route: 048
     Dates: start: 20090911
  6. DIAZEPAM [Concomitant]
     Dosage: 5 MG, UNK
     Route: 048
     Dates: start: 20090918
  7. TEMAZEPAM [Concomitant]
     Dosage: 20 MG, UNK
     Route: 048
     Dates: start: 20090911
  8. PREDNISONE [Suspect]
     Indication: MANTLE CELL LYMPHOMA
     Dosage: 100 MG, UNK
     Route: 048
     Dates: start: 20090911
  9. ACYCLOVIR [Concomitant]
     Indication: PROPHYLAXIS
     Dosage: 200 MG, UNK
     Route: 048
     Dates: start: 20090909
  10. ALLOPURINOL [Concomitant]
     Indication: PROPHYLAXIS
     Dosage: 300 MG, UNK
     Route: 048
     Dates: start: 20090911
  11. MORPHINE SULFATE [Concomitant]
     Indication: PAIN
     Dosage: 50 MG, UNK
     Route: 048
     Dates: start: 20090911
  12. AZITHROMYCIN [Concomitant]
     Dosage: 500 MG, UNK
     Route: 048
     Dates: start: 20090928
  13. VELCADE [Suspect]
     Indication: MANTLE CELL LYMPHOMA
     Dosage: 2.9 MG, UNK
     Route: 042
     Dates: start: 20090911
  14. CHLORPHENAMINE [Concomitant]
     Indication: PROPHYLAXIS
     Dosage: 4 MG, UNK
     Route: 048
     Dates: start: 20090911

REACTIONS (4)
  - URINARY TRACT INFECTION [None]
  - PNEUMONIA PRIMARY ATYPICAL [None]
  - POLLAKIURIA [None]
  - INFECTION [None]
